FAERS Safety Report 16626230 (Version 1)
Quarter: 2019Q3

REPORT INFORMATION
  Report Type: Spontaneous
  Country: US (occurrence: US)
  Receive Date: 20190724
  Receipt Date: 20190724
  Transmission Date: 20191004
  Serious: No
  Sender: FDA-Public Use
  Company Number: US-GLAXOSMITHKLINE-US2019130548

PATIENT
  Age: 23 Year
  Sex: Female

DRUGS (1)
  1. FLONASE [Suspect]
     Active Substance: FLUTICASONE PROPIONATE
     Indication: HYPERSENSITIVITY
     Dosage: UNK UNK, QD( ONCE SPRAY IN EACH NOSTRIL)
     Route: 045
     Dates: start: 20190209, end: 20190209

REACTIONS (2)
  - Swelling face [Recovered/Resolved]
  - Incorrect dose administered [Unknown]

NARRATIVE: CASE EVENT DATE: 20190209
